FAERS Safety Report 9955385 (Version 1)
Quarter: 2014Q1

REPORT INFORMATION
  Report Type: Report from Study
  Country: US (occurrence: US)
  Receive Date: 20140304
  Receipt Date: 20140304
  Transmission Date: 20141002
  Serious: No
  Sender: FDA-Public Use
  Company Number: US-ABBVIE-13P-163-1089689-00

PATIENT
  Age: 18 Year
  Sex: Male

DRUGS (4)
  1. HUMIRA [Suspect]
     Indication: JUVENILE IDIOPATHIC ARTHRITIS
     Dosage: WEEKLY
     Dates: start: 201010
  2. METHOTREXATE [Concomitant]
     Indication: JUVENILE IDIOPATHIC ARTHRITIS
     Dosage: WEEKLY
  3. NORCO [Concomitant]
     Indication: PAIN
     Dosage: 10/325
  4. BICILLION [Concomitant]
     Indication: RHEUMATIC FEVER
     Dosage: 2ML UNITS

REACTIONS (2)
  - Inflammation [Recovering/Resolving]
  - Pain [Recovering/Resolving]
